FAERS Safety Report 24381452 (Version 1)
Quarter: 2024Q4

REPORT INFORMATION
  Report Type: Spontaneous
  Country: CA (occurrence: CA)
  Receive Date: 20241001
  Receipt Date: 20241001
  Transmission Date: 20250115
  Serious: Yes (Other)
  Sender: ACCORD
  Company Number: None

PATIENT
  Age: 18 Year
  Sex: Female
  Weight: 90 kg

DRUGS (4)
  1. METHOTREXATE [Suspect]
     Active Substance: METHOTREXATE
     Indication: Product used for unknown indication
     Dosage: 1 EVERY 1 WEEKS
     Route: 058
  2. ADVIL [Concomitant]
     Active Substance: IBUPROFEN
     Dosage: EVERY 1 DAYS
     Route: 048
  3. NAPROXEN [Concomitant]
     Active Substance: NAPROXEN
     Dosage: 2 EVERY 1 DAYS
     Route: 048
  4. SEMAGLUTIDE [Concomitant]
     Active Substance: SEMAGLUTIDE
     Dosage: 1 EVERY 1 WEEKS
     Route: 058

REACTIONS (1)
  - Gastrointestinal disorder [Unknown]
